FAERS Safety Report 5069799-8 (Version None)
Quarter: 2006Q3

REPORT INFORMATION
  Report Type: 
  Country: None (occurrence: None)
  Receive Date: 20060731
  Receipt Date: 20060720
  Transmission Date: 20061208
  Serious: Yes (Other)
  Sender: FDA-Public Use
  Company Number: 2006082997

PATIENT
  Age: 69 Year
  Sex: Male
  Weight: 68 kg

DRUGS (2)
  1. CELEBRA (CELECOXIB) [Suspect]
     Indication: BACK INJURY
     Dosage: 200 MG (200 MG), ORAL
     Route: 048
     Dates: start: 20060626, end: 20060626
  2. DRUG, UNSPECIFIED (DRUG UNSPECIFIED) [Concomitant]

REACTIONS (6)
  - ABNORMAL BEHAVIOUR [None]
  - BLOOD PRESSURE DECREASED [None]
  - DIZZINESS [None]
  - DYSURIA [None]
  - HALLUCINATION, VISUAL [None]
  - NAUSEA [None]
